FAERS Safety Report 16801759 (Version 1)
Quarter: 2019Q3

REPORT INFORMATION
  Report Type: Spontaneous
  Country: US (occurrence: US)
  Receive Date: 20190912
  Receipt Date: 20190912
  Transmission Date: 20191005
  Serious: Yes (Congenital Anomaly, Other)
  Sender: FDA-Public Use
  Company Number: US-CELGENEUS-USA-20190900716

PATIENT
  Sex: Male

DRUGS (2)
  1. REVLIMID [Suspect]
     Active Substance: LENALIDOMIDE
     Dosage: 5 MILLIGRAM
     Route: 048
     Dates: start: 201902, end: 20190627
  2. REVLIMID [Suspect]
     Active Substance: LENALIDOMIDE
     Indication: SKIN DISORDER
     Dosage: 5 MILLIGRAM
     Route: 048
     Dates: start: 20171215

REACTIONS (1)
  - Human chorionic gonadotropin positive [Unknown]

NARRATIVE: CASE EVENT DATE: 2019
